FAERS Safety Report 6900808-4 (Version None)
Quarter: 2010Q3

REPORT INFORMATION
  Report Type: 
  Country: None (occurrence: None)
  Receive Date: 20100803
  Receipt Date: 20100722
  Transmission Date: 20110219
  Serious: Yes (Hospitalization, Other)
  Sender: FDA-Public Use
  Company Number: DE-PFIZER INC-2010084971

PATIENT
  Age: 50 Year
  Sex: Male
  Weight: 68 kg

DRUGS (3)
  1. LYRICA [Suspect]
     Indication: PARTIAL SEIZURES
     Dosage: 600 MG DAILY
     Route: 048
     Dates: start: 20100614, end: 20100625
  2. VALPROAT ^AZUPHARMA^ [Concomitant]
     Indication: PARTIAL SEIZURES
     Dosage: 1500 MG DAILY
     Route: 048
     Dates: start: 20040101
  3. ESLICARBAZEPINE ACETATE [Concomitant]
     Indication: PARTIAL SEIZURES
     Dosage: 400 MG DAILY
     Route: 048
     Dates: start: 20090101

REACTIONS (6)
  - ALANINE AMINOTRANSFERASE INCREASED [None]
  - ASPARTATE AMINOTRANSFERASE INCREASED [None]
  - BLOOD CREATINE PHOSPHOKINASE INCREASED [None]
  - BLOOD CREATINE PHOSPHOKINASE MB INCREASED [None]
  - GAMMA-GLUTAMYLTRANSFERASE INCREASED [None]
  - RHABDOMYOLYSIS [None]
